FAERS Safety Report 10573054 (Version 1)
Quarter: 2014Q4

REPORT INFORMATION
  Report Type: Spontaneous
  Country: CH (occurrence: CH)
  Receive Date: 20141110
  Receipt Date: 20141110
  Transmission Date: 20150529
  Serious: Yes (Congenital Anomaly, Other)
  Sender: FDA-Public Use
  Company Number: CH-GLAXOSMITHKLINE-CH2014017117

PATIENT

DRUGS (4)
  1. LAMICTAL [Suspect]
     Active Substance: LAMOTRIGINE
     Indication: BIPOLAR DISORDER
     Route: 064
     Dates: start: 2011, end: 20140321
  2. PREGNACARE [Concomitant]
     Route: 064
     Dates: start: 20140301, end: 20141002
  3. ITINEROL B6 [Concomitant]
     Route: 064
     Dates: start: 201403, end: 201404
  4. MALTOFER [Concomitant]
     Route: 064
     Dates: start: 201403, end: 201410

REACTIONS (4)
  - Neonatal respiratory distress syndrome [Unknown]
  - Exposure during pregnancy [Recovered/Resolved]
  - Premature baby [Recovered/Resolved]
  - Pierre Robin syndrome [Unknown]

NARRATIVE: CASE EVENT DATE: 20140208
